FAERS Safety Report 18456885 (Version 1)
Quarter: 2020Q4

REPORT INFORMATION
  Report Type: Spontaneous
  Country: DE (occurrence: DE)
  Receive Date: 20201103
  Receipt Date: 20201103
  Transmission Date: 20210114
  Serious: Yes (Other)
  Sender: FDA-Public Use
  Company Number: DE-ASTRAZENECA-2020SF40872

PATIENT
  Age: 78 Year
  Sex: Female
  Weight: 53 kg

DRUGS (1)
  1. TAGRISSO [Suspect]
     Active Substance: OSIMERTINIB
     Indication: BRONCHIAL CARCINOMA
     Route: 048
     Dates: start: 201912

REACTIONS (4)
  - Pain in extremity [Not Recovered/Not Resolved]
  - Musculoskeletal chest pain [Not Recovered/Not Resolved]
  - Dizziness [Not Recovered/Not Resolved]
  - Platelet disorder [Not Recovered/Not Resolved]

NARRATIVE: CASE EVENT DATE: 202009
